FAERS Safety Report 19745374 (Version 1)
Quarter: 2021Q3

REPORT INFORMATION
  Report Type: Spontaneous
  Country: FR (occurrence: FR)
  Receive Date: 20210825
  Receipt Date: 20210825
  Transmission Date: 20211014
  Serious: Yes (Hospitalization)
  Sender: FDA-Public Use
  Company Number: FR-TEVA-2021-FR-1944295

PATIENT
  Age: 74 Year
  Sex: Female
  Weight: 60 kg

DRUGS (6)
  1. MIRTAZAPINE. [Suspect]
     Active Substance: MIRTAZAPINE
     Indication: DEPRESSION
     Dosage: 15MG
     Route: 048
     Dates: start: 20200101, end: 20201227
  2. DIGOXINE [Concomitant]
     Active Substance: DIGOXIN
     Dosage: 0.13MG
     Route: 048
     Dates: start: 20200101
  3. DEPAKOTE [Suspect]
     Active Substance: DIVALPROEX SODIUM
     Indication: BIPOLAR DISORDER
     Dosage: 500MG
     Route: 048
     Dates: start: 202009
  4. XANAX 1 MG, COMPRIME SECABLE [Concomitant]
     Dosage: 1DF, SCORED
     Route: 048
     Dates: start: 20200101
  5. NOCTAMIDE 2 MG, COMPRIME SECABLE [Suspect]
     Active Substance: LORMETAZEPAM
     Indication: INSOMNIA
     Dosage: 2MG, SCORED
     Route: 048
     Dates: start: 20201228, end: 20210106
  6. DULOXETINE (CHLORHYDRATE DE) [Suspect]
     Active Substance: DULOXETINE
     Indication: DEPRESSION
     Dosage: 60MG
     Route: 048
     Dates: start: 20201228, end: 20210107

REACTIONS (1)
  - Inappropriate antidiuretic hormone secretion [Recovered/Resolved]

NARRATIVE: CASE EVENT DATE: 20201228
